FAERS Safety Report 12801457 (Version 1)
Quarter: 2016Q4

REPORT INFORMATION
  Report Type: Spontaneous
  Country: CA (occurrence: CA)
  Receive Date: 20161003
  Receipt Date: 20161003
  Transmission Date: 20170207
  Serious: Yes (Other)
  Sender: FDA-Public Use
  Company Number: CA-ACCORD-044303

PATIENT
  Age: 57 Year
  Sex: Female
  Weight: 66.8 kg

DRUGS (8)
  1. SULFACET-R [Concomitant]
     Active Substance: SULFACETAMIDE SODIUM\SULFUR
     Dosage: BID TO FACE
     Route: 061
  2. PACLITAXEL/PACLITAXEL LIPOSOME [Suspect]
     Active Substance: PACLITAXEL
     Indication: ENDOMETRIAL CANCER
     Dosage: STRENGTH 6 MG/ML
     Route: 042
     Dates: start: 20160715, end: 20160715
  3. LORAZEPAM. [Concomitant]
     Active Substance: LORAZEPAM
     Indication: SOMNOLENCE
     Dosage: 0.5-1MG QHS PRN
     Route: 048
  4. ESOMEPRAZOLE/ESOMEPRAZOLE MAGNESIUM/ESOMEPRAZOLE SODIUM [Concomitant]
     Indication: GASTROOESOPHAGEAL REFLUX DISEASE
     Route: 048
  5. METAMUCIL [Concomitant]
     Active Substance: PLANTAGO SEED
     Indication: CONSTIPATION
     Dosage: PRN
     Route: 048
  6. COLACE [Concomitant]
     Active Substance: DOCUSATE SODIUM
     Indication: CONSTIPATION
     Dosage: 1 CAP QAM AND 2 CAPS QHS
     Route: 048
  7. CETIRIZINE [Concomitant]
     Active Substance: CETIRIZINE HYDROCHLORIDE
     Indication: SEASONAL ALLERGY
     Dosage: PRN
     Route: 048
  8. ACICLOVIR [Concomitant]
     Active Substance: ACYCLOVIR
     Indication: ORAL HERPES
     Dosage: PRN
     Route: 061

REACTIONS (4)
  - Back pain [Recovered/Resolved]
  - Off label use [Unknown]
  - Chest discomfort [Recovered/Resolved]
  - Hypersensitivity [None]

NARRATIVE: CASE EVENT DATE: 20160715
